FAERS Safety Report 8048754-X (Version None)
Quarter: 2012Q1

REPORT INFORMATION
  Report Type: 
  Country: None (occurrence: None)
  Receive Date: 20120117
  Receipt Date: 20120111
  Transmission Date: 20120608
  Serious: Yes (Other)
  Sender: FDA-Public Use
  Company Number: GB-AMGEN-GBRSP2011067353

PATIENT
  Age: 64 Year
  Sex: Female
  Weight: 55.6 kg

DRUGS (3)
  1. PROLIA [Suspect]
     Indication: OSTEOPOROSIS
     Dosage: 60 MG, Q6MO
     Dates: start: 20111219, end: 20111219
  2. QVAR 40 [Concomitant]
     Route: 055
  3. ALBUTEROL SULFATE AUTOHALER [Concomitant]
     Route: 055

REACTIONS (5)
  - FLUSHING [None]
  - PARAESTHESIA ORAL [None]
  - DRY THROAT [None]
  - DRY MOUTH [None]
  - OROPHARYNGEAL PAIN [None]
